FAERS Safety Report 23499369 (Version 2)
Quarter: 2024Q2

REPORT INFORMATION
  Report Type: Report from Study
  Country: CO (occurrence: CO)
  Receive Date: 20240208
  Receipt Date: 20240620
  Transmission Date: 20240716
  Serious: Yes (Hospitalization, Other)
  Sender: FDA-Public Use
  Company Number: CO-TAKEDA-2022TUS032528

PATIENT
  Age: 46 Year
  Sex: Female
  Weight: 62 kg

DRUGS (8)
  1. VEDOLIZUMAB [Suspect]
     Active Substance: VEDOLIZUMAB
     Indication: Colitis ulcerative
     Dosage: 300 MILLIGRAM
     Route: 042
     Dates: start: 20220510
  2. VEDOLIZUMAB [Suspect]
     Active Substance: VEDOLIZUMAB
     Dosage: 900 MILLIGRAM
     Route: 042
  3. VEDOLIZUMAB [Suspect]
     Active Substance: VEDOLIZUMAB
     Dosage: 300 MILLIGRAM
     Route: 042
  4. VEDOLIZUMAB [Suspect]
     Active Substance: VEDOLIZUMAB
     Dosage: 900 MILLIGRAM
     Route: 042
  5. VEDOLIZUMAB [Suspect]
     Active Substance: VEDOLIZUMAB
     Dosage: 300 MILLIGRAM
     Route: 042
  6. VEDOLIZUMAB [Suspect]
     Active Substance: VEDOLIZUMAB
     Dosage: 300 MILLIGRAM
     Route: 042
  7. VEDOLIZUMAB [Suspect]
     Active Substance: VEDOLIZUMAB
     Dosage: 300 MILLIGRAM
     Route: 042
  8. VEDOLIZUMAB [Suspect]
     Active Substance: VEDOLIZUMAB
     Dosage: 300 MILLIGRAM
     Route: 042

REACTIONS (17)
  - Appendicitis [Recovering/Resolving]
  - Peritonitis [Recovering/Resolving]
  - Malaise [Recovered/Resolved]
  - Discouragement [Recovered/Resolved]
  - Vomiting [Recovered/Resolved]
  - Blood pressure increased [Recovering/Resolving]
  - Headache [Recovering/Resolving]
  - Nausea [Recovered/Resolved]
  - Medication error [Unknown]
  - Off label use [Unknown]
  - Flank pain [Recovered/Resolved]
  - Urinary tract infection [Recovered/Resolved]
  - Dizziness [Recovering/Resolving]
  - Abdominal pain [Recovered/Resolved]
  - Discomfort [Recovering/Resolving]
  - Abdominal distension [Recovered/Resolved]
  - Back pain [Recovered/Resolved]

NARRATIVE: CASE EVENT DATE: 20220510
